FAERS Safety Report 22122299 (Version 1)
Quarter: 2023Q1

REPORT INFORMATION
  Report Type: Spontaneous
  Country: NL (occurrence: NL)
  Receive Date: 20230321
  Receipt Date: 20230321
  Transmission Date: 20230418
  Serious: Yes (Other)
  Sender: FDA-Public Use
  Company Number: None

PATIENT
  Sex: Female
  Weight: 75 kg

DRUGS (7)
  1. ROPIVACAINE [Suspect]
     Active Substance: ROPIVACAINE
     Indication: Nerve block
     Dosage: AND AFTERWARDS 150 MG WITH A N. POPLITEA BLOCK.
  2. ROPIVACAINE [Suspect]
     Active Substance: ROPIVACAINE
     Dosage: 75 MG AND THEN 150 MG AT AN N. POPLITEA BLOCK.
     Dates: start: 20230224
  3. BUPIVACAINE\MEPIVACAINE [Suspect]
     Active Substance: BUPIVACAINE\MEPIVACAINE
     Indication: Spinal anaesthesia
     Dosage: 150 MG SPINAL?ROA-20009000
     Dates: start: 20230224
  4. DICLOFENAC SODIUM [Concomitant]
     Active Substance: DICLOFENAC SODIUM
     Indication: Product used for unknown indication
     Dosage: ZETPIL, 100 MG (MILLIGRAM)
  5. PARACETAMOL  TABLET  500MG / Brand name not specified [Concomitant]
     Indication: Product used for unknown indication
     Dosage: TABLET, 500 MG (MILLIGRAM)
  6. CEFAZOLINE  INFVLST  20MG/ML / Brand name not specified [Concomitant]
     Indication: Product used for unknown indication
     Dosage: SOLUTION FOR INFUSION 20 MG/ML
  7. PROPOFOL  INJ.EMULSION 10MG/ML / Brand name not specified [Concomitant]
     Indication: Product used for unknown indication
     Dosage: EMULSION FOR INJECTION 10 MG/ML (MILLIGRAM PER MILLILITER)

REACTIONS (5)
  - Motor dysfunction [None]
  - Prescribed overdose [None]
  - Areflexia [None]
  - Local reaction [None]
  - Hypoaesthesia [None]
